FAERS Safety Report 9140430 (Version 1)
Quarter: 2013Q1

REPORT INFORMATION
  Report Type: Spontaneous
  Country: US (occurrence: US)
  Receive Date: 20130305
  Receipt Date: 20130305
  Transmission Date: 20140127
  Serious: No
  Sender: FDA-Public Use
  Company Number: US-B.I. PHARMACEUTICALS,INC./RIDGEFIELD-2013-BI-05528BP

PATIENT
  Sex: Female

DRUGS (10)
  1. ZANTAC COOL MINT (TABLETS) [Suspect]
     Indication: DYSPEPSIA
     Dosage: 300 MG
     Route: 048
     Dates: start: 20130219
  2. ONGLYZA [Concomitant]
     Indication: DIABETES MELLITUS
     Route: 048
  3. PROPRANOLOL  LA [Concomitant]
     Dosage: 80 MG
     Route: 048
  4. WARFARIN [Concomitant]
     Route: 048
  5. CRESTOR [Concomitant]
     Dosage: 10 MG
     Route: 048
  6. L-THYROXINE [Concomitant]
     Dosage: 0.25 MG
     Route: 048
  7. LOMOTIL [Concomitant]
     Dosage: 2.5 MG
     Route: 048
  8. CARDIA [Concomitant]
     Dosage: 240 MG
     Route: 048
  9. GLYBURIDE [Concomitant]
     Route: 048
  10. PEDIALYTE [Concomitant]
     Route: 048

REACTIONS (2)
  - Faeces discoloured [Not Recovered/Not Resolved]
  - Dry mouth [Not Recovered/Not Resolved]
